FAERS Safety Report 25243311 (Version 1)
Quarter: 2025Q2

REPORT INFORMATION
  Report Type: Report from Study
  Country: QA (occurrence: QA)
  Receive Date: 20250428
  Receipt Date: 20250428
  Transmission Date: 20250717
  Serious: Yes (Other)
  Sender: UCB
  Company Number: QA-UCBSA-2025023868

PATIENT

DRUGS (1)
  1. CERTOLIZUMAB PEGOL [Suspect]
     Active Substance: CERTOLIZUMAB PEGOL
     Indication: Product used for unknown indication

REACTIONS (4)
  - Soft tissue infection [Unknown]
  - Respiratory tract infection [Unknown]
  - Gastrointestinal infection [Unknown]
  - Urinary tract infection [Unknown]
